FAERS Safety Report 12995899 (Version 1)
Quarter: 2016Q4

REPORT INFORMATION
  Report Type: Spontaneous
  Country: US (occurrence: US)
  Receive Date: 20161202
  Receipt Date: 20161202
  Transmission Date: 20170207
  Serious: No
  Sender: FDA-Public Use
  Company Number: US-GLAXOSMITHKLINE-US2016178827

PATIENT
  Age: 61 Year
  Sex: Female

DRUGS (5)
  1. TANZEUM [Suspect]
     Active Substance: ALBIGLUTIDE
     Indication: DIABETES MELLITUS
     Dosage: 30 MG, WE
     Route: 042
     Dates: start: 201609
  2. CALCIUM [Concomitant]
     Active Substance: CALCIUM
  3. VALSARTAN. [Concomitant]
     Active Substance: VALSARTAN
  4. INVOKANA [Concomitant]
     Active Substance: CANAGLIFLOZIN
  5. METFORMIN [Concomitant]
     Active Substance: METFORMIN HYDROCHLORIDE

REACTIONS (1)
  - Constipation [Not Recovered/Not Resolved]

NARRATIVE: CASE EVENT DATE: 201609
